FAERS Safety Report 21267283 (Version 2)
Quarter: 2022Q3

REPORT INFORMATION
  Report Type: Report from Study
  Country: CA (occurrence: CA)
  Receive Date: 20220829
  Receipt Date: 20220905
  Transmission Date: 20221026
  Serious: Yes (Hospitalization, Other)
  Sender: FDA-Public Use
  Company Number: CA-GLAXOSMITHKLINE-CA2022122447

PATIENT

DRUGS (2)
  1. MEPOLIZUMAB [Suspect]
     Active Substance: MEPOLIZUMAB
     Indication: Asthma
     Dosage: 100 MG, Z EVERY 4 WEEK
     Route: 058
     Dates: start: 20200703
  2. PREDNISONE [Concomitant]
     Active Substance: PREDNISONE
     Indication: Product used for unknown indication
     Dosage: 2.5 MG, QD

REACTIONS (9)
  - Neck pain [Unknown]
  - Arthralgia [Unknown]
  - Spinal pain [Unknown]
  - Pain in extremity [Unknown]
  - Muscular weakness [Unknown]
  - Eosinophilic granulomatosis with polyangiitis [Unknown]
  - Pulmonary congestion [Unknown]
  - Asthma [Unknown]
  - Oxygen saturation [Unknown]

NARRATIVE: CASE EVENT DATE: 20211001
